FAERS Safety Report 9643956 (Version 2)
Quarter: 2013Q4

REPORT INFORMATION
  Report Type: Spontaneous
  Country: JP (occurrence: None)
  Receive Date: 20131023
  Receipt Date: 20131101
  Transmission Date: 20140711
  Serious: Yes (Other)
  Sender: FDA-Public Use
  Company Number: JP-20130085

PATIENT
  Age: 63 Year
  Sex: Female

DRUGS (3)
  1. LIPIODOL [Suspect]
     Indication: SCLEROTHERAPY
     Route: 042
  2. HISTOACRYL [Suspect]
     Route: 042
  3. ETHANOLAMINE OLEATE [Concomitant]

REACTIONS (4)
  - Splenic infarction [None]
  - Off label use [None]
  - Essential thrombocythaemia [None]
  - Splenic necrosis [None]
